FAERS Safety Report 11685140 (Version 1)
Quarter: 2015Q4

REPORT INFORMATION
  Report Type: Spontaneous
  Country: None (occurrence: None)
  Receive Date: 20151029
  Receipt Date: 20151029
  Transmission Date: 20160304
  Serious: Yes (Hospitalization)
  Sender: FDA-Public Use
  Company Number: None

PATIENT
  Age: 77 Year
  Sex: Female
  Weight: 57.2 kg

DRUGS (13)
  1. ASPIRIN. [Concomitant]
     Active Substance: ASPIRIN
  2. AMLODIPINE [Concomitant]
     Active Substance: AMLODIPINE BESYLATE
  3. FAMOTIDINE. [Concomitant]
     Active Substance: FAMOTIDINE
  4. CITALOPRAM [Suspect]
     Active Substance: CITALOPRAM HYDROBROMIDE
     Indication: ANXIETY
     Route: 048
  5. LEVOTHYROXINE. [Concomitant]
     Active Substance: LEVOTHYROXINE
  6. METOPROLOL TARTRATE. [Concomitant]
     Active Substance: METOPROLOL TARTRATE
  7. OXYBUTYNIN [Concomitant]
     Active Substance: OXYBUTYNIN
  8. CITALOPRAM [Concomitant]
     Active Substance: CITALOPRAM HYDROBROMIDE
  9. TOPIRAMATE. [Concomitant]
     Active Substance: TOPIRAMATE
  10. ALBUTEROL INHALER [Concomitant]
     Active Substance: ALBUTEROL
  11. DIAZEPAM. [Concomitant]
     Active Substance: DIAZEPAM
  12. LISINOPRIL. [Concomitant]
     Active Substance: LISINOPRIL
  13. WARFARIN [Concomitant]
     Active Substance: WARFARIN

REACTIONS (6)
  - Hypothyroidism [None]
  - Deep vein thrombosis [None]
  - Hyponatraemia [None]
  - Metabolic encephalopathy [None]
  - Coronary artery disease [None]
  - Acute kidney injury [None]

NARRATIVE: CASE EVENT DATE: 20151005
